FAERS Safety Report 7298505-1 (Version None)
Quarter: 2011Q1

REPORT INFORMATION
  Report Type: 
  Country: None (occurrence: None)
  Receive Date: 20110217
  Receipt Date: 20110210
  Transmission Date: 20110831
  Serious: Yes (Hospitalization, Other)
  Sender: FDA-Public Use
  Company Number: US-JNJFOC-20100801522

PATIENT
  Sex: Male

DRUGS (2)
  1. METHYLPREDNISOLONE [Suspect]
     Indication: PRODUCT USED FOR UNKNOWN INDICATION
  2. LEVAQUIN [Suspect]
     Indication: ILL-DEFINED DISORDER
     Route: 048

REACTIONS (7)
  - MENISCUS LESION [None]
  - TENDON RUPTURE [None]
  - TENDON DISORDER [None]
  - ARTHRALGIA [None]
  - ROTATOR CUFF SYNDROME [None]
  - BURSITIS [None]
  - TENDONITIS [None]
